FAERS Safety Report 22064970 (Version 2)
Quarter: 2023Q1

REPORT INFORMATION
  Report Type: Spontaneous
  Country: MX (occurrence: MX)
  Receive Date: 20230306
  Receipt Date: 20230310
  Transmission Date: 20230418
  Serious: Yes (Hospitalization)
  Sender: FDA-Public Use
  Company Number: MX-BAYER-2023A028075

PATIENT
  Age: 65 Year
  Sex: Male

DRUGS (1)
  1. LAROTRECTINIB [Suspect]
     Active Substance: LAROTRECTINIB
     Indication: Glioblastoma multiforme
     Dosage: 100 MG, BID
     Route: 048
     Dates: start: 20220711, end: 20230224

REACTIONS (1)
  - Glioblastoma multiforme [Not Recovered/Not Resolved]

NARRATIVE: CASE EVENT DATE: 20230201
